FAERS Safety Report 4367002-5 (Version None)
Quarter: 2004Q2

REPORT INFORMATION
  Report Type: 
  Country: None (occurrence: None)
  Receive Date: 20040527
  Receipt Date: 20040527
  Transmission Date: 20050107
  Serious: Yes (Life-Threatening, Hospitalization, Disabling, Other)
  Sender: FDA-Public Use
  Company Number: None

PATIENT
  Age: 42 Year
  Sex: Male

DRUGS (1)
  1. AFRIN [Suspect]
     Dosage: INTRANASAL
     Route: 045

REACTIONS (1)
  - ANOXIC ENCEPHALOPATHY [None]
